FAERS Safety Report 9101689 (Version 1)
Quarter: 2013Q1

REPORT INFORMATION
  Report Type: Spontaneous
  Country: US (occurrence: US)
  Receive Date: 20130215
  Receipt Date: 20130215
  Transmission Date: 20140127
  Serious: Yes (Death, Hospitalization, Other)
  Sender: FDA-Public Use
  Company Number: US-SAVIENT-2013S1000010

PATIENT
  Sex: Male

DRUGS (1)
  1. KRYSTEXXA [Suspect]
     Indication: PRODUCT USED FOR UNKNOWN INDICATION
     Dosage: DRUG ROUTE: INTRAVENOUS
     Route: 042
     Dates: start: 20120920, end: 20120920

REACTIONS (5)
  - Death [Fatal]
  - Gout [Unknown]
  - Pancytopenia [Unknown]
  - Rheumatoid arthritis [Unknown]
  - Electrolyte imbalance [Unknown]
